FAERS Safety Report 19671589 (Version 3)
Quarter: 2021Q3

REPORT INFORMATION
  Report Type: Report from Study
  Country: ES (occurrence: ES)
  Receive Date: 20210806
  Receipt Date: 20210814
  Transmission Date: 20211014
  Serious: Yes (Death, Hospitalization)
  Sender: FDA-Public Use
  Company Number: ES-REGENERON PHARMACEUTICALS, INC.-2021-74254

PATIENT

DRUGS (16)
  1. SAR439459 [Suspect]
     Active Substance: SAR-439459
     Indication: BLADDER CANCER STAGE I, WITHOUT CANCER IN SITU
     Dosage: UNK UNK, Q3W
     Route: 042
     Dates: start: 20210624, end: 20210624
  2. CALCIFEDIOL [Concomitant]
     Active Substance: CALCIFEDIOL
     Indication: PROPHYLAXIS
     Dosage: TOTAL DAILY DOSE: 9.5 MG
     Route: 048
     Dates: start: 201806
  3. CEMIPLIMAB [Suspect]
     Active Substance: CEMIPLIMAB
     Indication: BLADDER CANCER STAGE I, WITHOUT CANCER IN SITU
     Dosage: 350 MG, Q3W
     Route: 042
     Dates: start: 20210624, end: 20210624
  4. AMLODIPINE BESYLATE. [Concomitant]
     Active Substance: AMLODIPINE BESYLATE
     Indication: PRODUCT USED FOR UNKNOWN INDICATION
     Dosage: TOTAL DAILY DOSE: 10 MG
     Route: 048
     Dates: start: 2009
  5. ACETAMINOPHEN. [Concomitant]
     Active Substance: ACETAMINOPHEN
     Indication: PROPHYLAXIS
     Dosage: TOTAL DAILY DOSE: 650 MG
     Route: 048
     Dates: start: 202106
  6. POLARAMINE [Concomitant]
     Active Substance: DEXCHLORPHENIRAMINE MALEATE
     Indication: PRODUCT USED FOR UNKNOWN INDICATION
     Dosage: 5 MG, 1X
     Route: 042
     Dates: start: 20210715, end: 20210715
  7. ALLOPURINOL. [Concomitant]
     Active Substance: ALLOPURINOL
     Indication: PRODUCT USED FOR UNKNOWN INDICATION
     Dosage: TOTAL DAILY DOSE: 100 MG
     Route: 048
     Dates: start: 2006
  8. ENALAPRIL MALEATE. [Concomitant]
     Active Substance: ENALAPRIL MALEATE
     Indication: PRODUCT USED FOR UNKNOWN INDICATION
     Dosage: TOTAL DAILY DOSE: 20 MG
     Route: 048
     Dates: start: 202103
  9. FLAXSEED [Concomitant]
     Active Substance: FLAX SEED
     Indication: PRODUCT USED FOR UNKNOWN INDICATION
     Dosage: TOTAL DAILY DOSE: 1, UNIT: OTHER
     Route: 048
     Dates: start: 201906
  10. SAR439459 [Suspect]
     Active Substance: SAR-439459
     Dosage: UNK UNK, Q3W
     Route: 042
     Dates: start: 20210715, end: 20210715
  11. METAMIZOL [Concomitant]
     Active Substance: METAMIZOLE SODIUM
     Indication: PROPHYLAXIS
     Dosage: TOTAL DAILY DOSE: 575 MG
     Route: 048
     Dates: start: 202106
  12. PLANTAGO OVATA [Concomitant]
     Active Substance: HERBALS\PLANTAGO OVATA LEAF
     Indication: PRODUCT USED FOR UNKNOWN INDICATION
     Dosage: TOTAL DAILY DOSE: 1 PACK
     Route: 048
     Dates: start: 202106
  13. PANTOPRAZOLE SODIUM. [Concomitant]
     Active Substance: PANTOPRAZOLE SODIUM
     Indication: PROPHYLAXIS
     Dosage: TOTAL DAILY DOSE: 20 MG
     Route: 048
     Dates: start: 202106
  14. ROSUVASTATIN CALCIUM. [Concomitant]
     Active Substance: ROSUVASTATIN CALCIUM
     Indication: PRODUCT USED FOR UNKNOWN INDICATION
     Dosage: TOTAL DAILY DOSE: 20 MG
     Route: 048
     Dates: start: 2006
  15. CEMIPLIMAB [Suspect]
     Active Substance: CEMIPLIMAB
     Dosage: 350 MG, Q3W
     Route: 042
     Dates: start: 20210715, end: 20210715
  16. ACETYLSALICYLIC ACID [Concomitant]
     Active Substance: ASPIRIN
     Indication: PRODUCT USED FOR UNKNOWN INDICATION
     Dosage: TOTAL DAILY DOSE: 100 MG
     Route: 048
     Dates: start: 202101

REACTIONS (1)
  - Fatigue [Fatal]

NARRATIVE: CASE EVENT DATE: 20210728
